FAERS Safety Report 14177395 (Version 1)
Quarter: 2017Q4

REPORT INFORMATION
  Report Type: Spontaneous
  Country: US (occurrence: US)
  Receive Date: 20171110
  Receipt Date: 20171110
  Transmission Date: 20180321
  Serious: Yes (Other)
  Sender: FDA-Public Use
  Company Number: US-GLAXOSMITHKLINE-US2017171914

PATIENT
  Age: 66 Year
  Sex: Male

DRUGS (2)
  1. ARNUITY ELLIPTA [Suspect]
     Active Substance: FLUTICASONE FUROATE
     Indication: ASTHMA
     Dosage: 1 PUFF(S), 1D
     Route: 055
     Dates: start: 20171019, end: 20171106
  2. BREO ELLIPTA [Suspect]
     Active Substance: FLUTICASONE FUROATE\VILANTEROL TRIFENATATE
     Indication: ASTHMA
     Dosage: 1 PUFF(S), 1D
     Route: 055
     Dates: start: 201704, end: 201705

REACTIONS (4)
  - Photopsia [Recovered/Resolved]
  - Cardiac flutter [Recovering/Resolving]
  - Condition aggravated [Recovering/Resolving]
  - Cataract nuclear [Not Recovered/Not Resolved]

NARRATIVE: CASE EVENT DATE: 2017
